FAERS Safety Report 5063698-3 (Version None)
Quarter: 2006Q3

REPORT INFORMATION
  Report Type: 
  Country: None (occurrence: None)
  Receive Date: 20060703
  Receipt Date: 20060504
  Transmission Date: 20061208
  Serious: No
  Sender: FDA-Public Use
  Company Number: ENTC2006-0136

PATIENT

DRUGS (1)
  1. STALEVO 50 [Suspect]
     Dosage: 50 MG, ORAL
     Route: 048

REACTIONS (3)
  - ASTHENIA [None]
  - DRUG ADMINISTRATION ERROR [None]
  - INCORRECT DOSE ADMINISTERED [None]
